FAERS Safety Report 12248519 (Version 1)
Quarter: 2016Q2

REPORT INFORMATION
  Report Type: Spontaneous
  Country: US (occurrence: US)
  Receive Date: 20160408
  Receipt Date: 20160408
  Transmission Date: 20160815
  Serious: No
  Sender: FDA-Public Use
  Company Number: US-BAYER-2016-059783

PATIENT
  Sex: Female

DRUGS (5)
  1. SIMVASTIN [Concomitant]
     Active Substance: SIMVASTATIN
     Dosage: UNK
  2. AMLODIPINE [Concomitant]
     Active Substance: AMLODIPINE BESYLATE
     Dosage: UNK
  3. FLONASE [Concomitant]
     Active Substance: FLUTICASONE PROPIONATE
     Dosage: UNK
  4. CLARITIN [Suspect]
     Active Substance: LORATADINE
     Indication: UPPER RESPIRATORY TRACT INFECTION
  5. CLARITIN [Suspect]
     Active Substance: LORATADINE
     Indication: NASAL CONGESTION
     Dosage: 1 DF, QD
     Dates: start: 20160325, end: 20160326

REACTIONS (4)
  - Cough [Recovered/Resolved]
  - Pleurisy [None]
  - Chest pain [Recovered/Resolved]
  - Off label use [None]

NARRATIVE: CASE EVENT DATE: 20160326
